FAERS Safety Report 7654427-5 (Version None)
Quarter: 2011Q3

REPORT INFORMATION
  Report Type: 
  Country: None (occurrence: None)
  Receive Date: 20110803
  Receipt Date: 20110801
  Transmission Date: 20111222
  Serious: Yes (Death)
  Sender: FDA-Public Use
  Company Number: BR-SANOFI-AVENTIS-2011SA047347

PATIENT
  Age: 64 Year
  Sex: Male
  Weight: 85.3 kg

DRUGS (2)
  1. GLIMEPIRIDE [Suspect]
     Indication: TYPE 2 DIABETES MELLITUS
     Dates: start: 20110602
  2. INVESTIGATIONAL DRUG [Suspect]
     Indication: TYPE 2 DIABETES MELLITUS
     Dates: start: 20110616

REACTIONS (1)
  - TRAUMATIC INTRACRANIAL HAEMORRHAGE [None]
